FAERS Safety Report 17430031 (Version 3)
Quarter: 2020Q1

REPORT INFORMATION
  Report Type: Spontaneous
  Country: US (occurrence: US)
  Receive Date: 20200218
  Receipt Date: 20200323
  Transmission Date: 20200409
  Serious: Yes (Hospitalization)
  Sender: FDA-Public Use
  Company Number: US-PFIZER INC-2020060603

PATIENT
  Age: 58 Year
  Sex: Female
  Weight: 51.7 kg

DRUGS (7)
  1. MOBIC [Concomitant]
     Active Substance: MELOXICAM
     Dosage: 15 MG ONCE A DAY
     Route: 048
     Dates: start: 20180608
  2. VASERETIC [Concomitant]
     Active Substance: ENALAPRIL MALEATE\HYDROCHLOROTHIAZIDE
     Dosage: UNK (10-25 MG PER TABLET)
     Route: 048
     Dates: start: 20200203
  3. METHOTREXATE SODIUM. [Suspect]
     Active Substance: METHOTREXATE SODIUM
     Indication: RHEUMATOID ARTHRITIS
     Dosage: UNK UNK, WEEKLY
     Dates: start: 201008, end: 20131105
  4. FOSAMAX [Concomitant]
     Active Substance: ALENDRONATE SODIUM
     Dosage: 70 MG, WEEKLY (MOUTH EVERY SEVEN (7) DAYS)
     Route: 048
     Dates: start: 20200211
  5. TYLENOL EXTRA STRENGTH [Concomitant]
     Active Substance: ACETAMINOPHEN
     Indication: ARTHRITIS
     Dosage: 500 MG, AS NEEDED TAKE 500 MG BY MOUTH EVERY 6 HOURS AS NEEDED
     Route: 048
     Dates: start: 20110407
  6. AZULFIDINE [Concomitant]
     Active Substance: SULFASALAZINE
     Dosage: 1500 MG, 1X/DAY (TAKE THREE TABLETS BY MOUTH TWICE DAILY)
     Route: 048
     Dates: start: 20200227
  7. AZULFIDINE [Concomitant]
     Active Substance: SULFASALAZINE
     Dosage: 1500 MG, 1X/DAY (TAKE THREE TABLETS BY MOUTH TWICE DAILY)
     Route: 048
     Dates: start: 20190819

REACTIONS (2)
  - Cellulitis [Recovered/Resolved with Sequelae]
  - Decreased immune responsiveness [Recovered/Resolved]

NARRATIVE: CASE EVENT DATE: 201008
